FAERS Safety Report 18267176 (Version 1)
Quarter: 2020Q3

REPORT INFORMATION
  Report Type: Spontaneous
  Country: US (occurrence: US)
  Receive Date: 20200913
  Receipt Date: 20200913
  Transmission Date: 20201103
  Serious: Yes (Other)
  Sender: FDA-Public Use
  Company Number: None

PATIENT
  Age: 25 Year
  Sex: Female
  Weight: 64.41 kg

DRUGS (2)
  1. QBREXZA [Suspect]
     Active Substance: GLYCOPYRRONIUM TOSYLATE
  2. FRAGANZIA HANDSOAP [Suspect]
     Active Substance: SODIUM LAURYL SULFATE
     Dates: start: 20200912, end: 20200912

REACTIONS (5)
  - Product contamination [None]
  - Product residue present [None]
  - Mydriasis [None]
  - Anticholinergic syndrome [None]
  - Exposure via eye contact [None]

NARRATIVE: CASE EVENT DATE: 20200912
